FAERS Safety Report 18589925 (Version 1)
Quarter: 2020Q4

REPORT INFORMATION
  Report Type: Spontaneous
  Country: US (occurrence: US)
  Receive Date: 20201207
  Receipt Date: 20201207
  Transmission Date: 20210114
  Serious: Yes (Hospitalization)
  Sender: FDA-Public Use
  Company Number: None

PATIENT
  Age: 56 Year
  Sex: Male

DRUGS (2)
  1. ONDANSETRON HYDROCHLORIDE 4MG/2ML APOTEX [Suspect]
     Active Substance: ONDANSETRON HYDROCHLORIDE
     Indication: COLON CANCER
     Route: 011
     Dates: start: 20201110
  2. HEPARIN LOCK FLUSH 100ML MEDEFIL, INC [Suspect]
     Active Substance: HEPARIN SODIUM
     Indication: COLON CANCER
     Dosage: ?          OTHER DOSE:500 UNITS ;?
     Route: 042
     Dates: start: 20201110

REACTIONS (1)
  - Cerebrovascular accident [None]

NARRATIVE: CASE EVENT DATE: 20201121
